FAERS Safety Report 4539395-7 (Version None)
Quarter: 2004Q4

REPORT INFORMATION
  Report Type: 
  Country: None (occurrence: None)
  Receive Date: 20041228
  Receipt Date: 20041028
  Transmission Date: 20050328
  Serious: Yes (Other)
  Sender: FDA-Public Use
  Company Number: PHEH2004US11656

PATIENT
  Age: 42 Year
  Sex: Male

DRUGS (4)
  1. ACTOS [Suspect]
     Indication: DIABETES MELLITUS
     Route: 048
     Dates: start: 20030101
  2. NPH ILETIN I (BEEF-PORK) [Concomitant]
     Indication: DIABETES MELLITUS
  3. REGULAR INSULIN [Concomitant]
     Indication: DIABETES MELLITUS
  4. DIOVAN [Suspect]
     Dosage: UNK
     Route: 048
     Dates: start: 20030101

REACTIONS (5)
  - BLOOD GLUCOSE INCREASED [None]
  - BLOOD UREA INCREASED [None]
  - GLYCOSYLATED HAEMOGLOBIN INCREASED [None]
  - MICROALBUMINURIA [None]
  - TREATMENT NONCOMPLIANCE [None]
